FAERS Safety Report 15394272 (Version 1)
Quarter: 2018Q3

REPORT INFORMATION
  Report Type: Spontaneous
  Country: US (occurrence: US)
  Receive Date: 20180918
  Receipt Date: 20180918
  Transmission Date: 20181010
  Serious: No
  Sender: FDA-Public Use
  Company Number: US-SCIEGEN PHARMACEUTICALS INC-2018SCISPO00613

PATIENT

DRUGS (4)
  1. ARIPIPRAZOLE. [Suspect]
     Active Substance: ARIPIPRAZOLE
     Indication: ANXIETY
     Dosage: 2 MG, UNK
     Route: 048
  2. ADVIL [Concomitant]
     Active Substance: IBUPROFEN
     Indication: BACK PAIN
     Dosage: UNK UNK, PRN
     Route: 065
  3. LORAZEPAM. [Concomitant]
     Active Substance: LORAZEPAM
     Indication: PRODUCT USED FOR UNKNOWN INDICATION
     Dosage: UNK
     Route: 065
  4. DICLOFENAC SODIUM. [Concomitant]
     Active Substance: DICLOFENAC SODIUM
     Indication: BACK PAIN
     Dosage: UNK UNK, PRN
     Route: 065

REACTIONS (4)
  - Anger [Recovered/Resolved]
  - Frustration tolerance decreased [Recovered/Resolved]
  - Agitation [Recovered/Resolved]
  - Product use in unapproved indication [None]
